FAERS Safety Report 20493965 (Version 1)
Quarter: 2022Q1

REPORT INFORMATION
  Report Type: Spontaneous
  Country: US (occurrence: None)
  Receive Date: 20220221
  Receipt Date: 20220221
  Transmission Date: 20220424
  Serious: Yes (Death)
  Sender: FDA-Public Use
  Company Number: US-ROCHE-3028792

PATIENT
  Age: 102 Year
  Sex: Female

DRUGS (9)
  1. ERIVEDGE [Suspect]
     Active Substance: VISMODEGIB
     Indication: Basal cell carcinoma
     Dosage: TAKE 1 CAPSULE 150 MG DAILY
     Route: 048
  2. ADVIL [Concomitant]
     Active Substance: IBUPROFEN
  3. CARVEDILOL [Concomitant]
     Active Substance: CARVEDILOL
  4. ESOMEPRAZOLE [Concomitant]
     Active Substance: ESOMEPRAZOLE
     Dosage: CPD
  5. FUROSEMIDE [Concomitant]
     Active Substance: FUROSEMIDE
  6. POTASSIUM [Concomitant]
     Active Substance: POTASSIUM
     Dosage: CH TBC 10 MEQ
  7. QUETIAPINE [Concomitant]
     Active Substance: QUETIAPINE
  8. VITAMIN D3 [Concomitant]
     Active Substance: CHOLECALCIFEROL
  9. CANNABIDIOL [Concomitant]
     Active Substance: CANNABIDIOL
     Dosage: POW

REACTIONS (1)
  - Death [Fatal]

NARRATIVE: CASE EVENT DATE: 20220207
